FAERS Safety Report 7805174-8 (Version None)
Quarter: 2011Q4

REPORT INFORMATION
  Report Type: 
  Country: None (occurrence: None)
  Receive Date: 20111010
  Receipt Date: 20110930
  Transmission Date: 20120403
  Serious: Yes (Disabling)
  Sender: FDA-Public Use
  Company Number: PHHY2011GB86689

PATIENT
  Age: 34 Year
  Sex: Female
  Weight: 109.8 kg

DRUGS (2)
  1. AMOXICILLIN AND CLAVULANATE POTASSIUM [Suspect]
     Route: 048
     Dates: start: 20110922
  2. PREDNISOLONE [Concomitant]
     Dates: start: 20110922

REACTIONS (1)
  - SKIN BURNING SENSATION [None]
